FAERS Safety Report 4453210-1 (Version None)
Quarter: 2004Q3

REPORT INFORMATION
  Report Type: 
  Country: None (occurrence: None)
  Receive Date: 20040901
  Receipt Date: 20040622
  Transmission Date: 20050211
  Serious: Yes (Hospitalization)
  Sender: FDA-Public Use
  Company Number: US081486

PATIENT
  Age: 35 Year
  Sex: Male

DRUGS (1)
  1. ENBREL [Suspect]
     Indication: PSORIASIS
     Dosage: 50 MG, 1 IN 1 WEEKS, SC
     Route: 058
     Dates: start: 20040607, end: 20040621

REACTIONS (4)
  - HYPERTENSION [None]
  - OPTIC NEURITIS [None]
  - RETINAL DETACHMENT [None]
  - RETINAL OEDEMA [None]
